FAERS Safety Report 7522187-4 (Version None)
Quarter: 2011Q2

REPORT INFORMATION
  Report Type: 
  Country: None (occurrence: None)
  Receive Date: 20110603
  Receipt Date: 20110526
  Transmission Date: 20111010
  Serious: Yes (Other)
  Sender: FDA-Public Use
  Company Number: US-SANOFI-AVENTIS-2011SA032995

PATIENT
  Age: 56 Year
  Sex: Female

DRUGS (7)
  1. DOXORUBICIN HCL [Suspect]
     Dates: start: 20030102, end: 20030102
  2. CYCLOPHOSPHAMIDE [Suspect]
     Dates: start: 20030102, end: 20030102
  3. DOXORUBICIN HCL [Suspect]
     Indication: BREAST CANCER
     Dates: start: 20021031, end: 20021031
  4. CYCLOPHOSPHAMIDE [Suspect]
     Indication: BREAST CANCER
     Dates: start: 20021031, end: 20021031
  5. DOCETAXEL [Suspect]
     Indication: BREAST CANCER
     Route: 041
     Dates: start: 20030123, end: 20030123
  6. DOCETAXEL [Suspect]
     Route: 041
     Dates: start: 20030327, end: 20030327
  7. ATIVAN [Concomitant]
     Dates: start: 20021025

REACTIONS (1)
  - LEUKAEMIA [None]
